FAERS Safety Report 7580693-0 (Version None)
Quarter: 2011Q2

REPORT INFORMATION
  Report Type: 
  Country: None (occurrence: None)
  Receive Date: 20110629
  Receipt Date: 20110622
  Transmission Date: 20111010
  Serious: Yes (Hospitalization)
  Sender: FDA-Public Use
  Company Number: ZA-ABBOTT-11P-143-0734424-00

PATIENT
  Age: 1 Year

DRUGS (3)
  1. VALPROATE SODIUM [Suspect]
  2. VALPROATE SODIUM [Suspect]
     Indication: CONVULSION
  3. PHENOBARB [Concomitant]
     Indication: PRODUCT USED FOR UNKNOWN INDICATION

REACTIONS (1)
  - CONVULSION [None]
